FAERS Safety Report 4778413-8 (Version None)
Quarter: 2005Q3

REPORT INFORMATION
  Report Type: 
  Country: None (occurrence: None)
  Receive Date: 20050926
  Receipt Date: 20050920
  Transmission Date: 20060218
  Serious: Yes (Hospitalization)
  Sender: FDA-Public Use
  Company Number: IL-JNJFOC-20050904820

PATIENT
  Age: 16 Year
  Sex: Male
  Weight: 54 kg

DRUGS (2)
  1. IBUPROFEN [Suspect]
     Indication: HEADACHE
  2. NAPROXEN [Suspect]
     Indication: HEADACHE

REACTIONS (1)
  - RENAL FAILURE ACUTE [None]
